FAERS Safety Report 25807766 (Version 1)
Quarter: 2025Q3

REPORT INFORMATION
  Report Type: Spontaneous
  Country: US (occurrence: US)
  Receive Date: 20250916
  Receipt Date: 20250916
  Transmission Date: 20251020
  Serious: No
  Sender: ELI LILLY AND COMPANY
  Company Number: US-ELI_LILLY_AND_COMPANY-US202509013616

PATIENT
  Age: 31 Year
  Sex: Female

DRUGS (9)
  1. ZEPBOUND [Suspect]
     Active Substance: TIRZEPATIDE
     Indication: Sleep apnoea syndrome
     Route: 058
     Dates: start: 20250301
  2. ZEPBOUND [Suspect]
     Active Substance: TIRZEPATIDE
     Indication: Sleep apnoea syndrome
     Route: 058
     Dates: start: 20250301
  3. ZEPBOUND [Suspect]
     Active Substance: TIRZEPATIDE
     Indication: Sleep apnoea syndrome
     Route: 058
     Dates: start: 20250301
  4. ZEPBOUND [Suspect]
     Active Substance: TIRZEPATIDE
     Indication: Sleep apnoea syndrome
     Route: 058
     Dates: start: 20250301
  5. ZEPBOUND [Suspect]
     Active Substance: TIRZEPATIDE
     Route: 058
  6. ZEPBOUND [Suspect]
     Active Substance: TIRZEPATIDE
     Route: 058
  7. ZEPBOUND [Suspect]
     Active Substance: TIRZEPATIDE
     Route: 058
  8. ZEPBOUND [Suspect]
     Active Substance: TIRZEPATIDE
     Route: 058
  9. DULOXETINE [Concomitant]
     Active Substance: DULOXETINE
     Indication: Depression
     Route: 065
     Dates: start: 20240601

REACTIONS (1)
  - Incorrect dose administered [Unknown]

NARRATIVE: CASE EVENT DATE: 20250912
